FAERS Safety Report 11057569 (Version 5)
Quarter: 2015Q2

REPORT INFORMATION
  Report Type: Spontaneous
  Country: KE (occurrence: KE)
  Receive Date: 20150422
  Receipt Date: 20150619
  Transmission Date: 20150821
  Serious: Yes (Death, Hospitalization)
  Sender: FDA-Public Use
  Company Number: PHHY2015KE047286

PATIENT
  Age: 36 Year
  Sex: Male
  Weight: 56 kg

DRUGS (3)
  1. PARACETAMOL [Suspect]
     Active Substance: ACETAMINOPHEN
     Indication: PRODUCT USED FOR UNKNOWN INDICATION
     Dosage: UNK
     Route: 065
     Dates: start: 20141024
  2. COARTEM [Suspect]
     Active Substance: ARTEMETHER\LUMEFANTRINE
     Indication: MALARIA
     Dosage: UNK
     Route: 065
     Dates: start: 20141024
  3. PREDNISOLONE. [Suspect]
     Active Substance: PREDNISOLONE
     Indication: ASTHMA
     Dosage: UNK
     Route: 065
     Dates: start: 20141024

REACTIONS (12)
  - Purulent discharge [Fatal]
  - Abdominal pain [Unknown]
  - Odynophagia [Fatal]
  - Pruritus [Fatal]
  - Speech disorder [Unknown]
  - Stevens-Johnson syndrome [Fatal]
  - Dysstasia [Unknown]
  - Malaise [Unknown]
  - Dermatitis bullous [Fatal]
  - Chest pain [Unknown]
  - Rash generalised [Fatal]
  - Pain [Fatal]
